FAERS Safety Report 25143626 (Version 1)
Quarter: 2025Q2

REPORT INFORMATION
  Report Type: Spontaneous
  Country: VN (occurrence: VN)
  Receive Date: 20250401
  Receipt Date: 20250401
  Transmission Date: 20250716
  Serious: Yes (Other)
  Sender: SANDOZ
  Company Number: VN-002147023-NVSC2025VN051267

PATIENT
  Sex: Female

DRUGS (6)
  1. ANASTROZOLE [Suspect]
     Active Substance: ANASTROZOLE
     Indication: Product used for unknown indication
     Route: 065
  2. EXEMESTANE [Suspect]
     Active Substance: EXEMESTANE
     Indication: Product used for unknown indication
     Route: 065
  3. GOSERELIN [Suspect]
     Active Substance: GOSERELIN
     Indication: Product used for unknown indication
     Route: 065
  4. LETROZOLE [Suspect]
     Active Substance: LETROZOLE
     Indication: Product used for unknown indication
     Route: 065
  5. RIBOCICLIB [Suspect]
     Active Substance: RIBOCICLIB
     Indication: Breast cancer metastatic
     Dosage: 600 MG, QD
     Route: 065
  6. RIBOCICLIB [Suspect]
     Active Substance: RIBOCICLIB
     Indication: Hormone receptor positive HER2 negative breast cancer

REACTIONS (11)
  - Neutropenia [Unknown]
  - Thrombocytopenia [Unknown]
  - Breast cancer metastatic [Unknown]
  - Malignant neoplasm progression [Unknown]
  - Hepatic enzyme increased [Unknown]
  - Musculoskeletal pain [Unknown]
  - Dermatitis [Unknown]
  - Fatigue [Unknown]
  - Anaemia [Unknown]
  - Nausea [Unknown]
  - Drug ineffective [Unknown]
